FAERS Safety Report 7278975-5 (Version None)
Quarter: 2011Q1

REPORT INFORMATION
  Report Type: 
  Country: None (occurrence: None)
  Receive Date: 20110207
  Receipt Date: 20110126
  Transmission Date: 20110831
  Serious: Yes (Disabling)
  Sender: FDA-Public Use
  Company Number: PHHY2011MT04794

PATIENT
  Sex: Female

DRUGS (3)
  1. AREDIA [Suspect]
     Indication: BREAST CANCER
     Dosage: 4 DF, QW
     Dates: start: 20060101, end: 20091001
  2. EPIRUBICIN [Concomitant]
     Dosage: UNK
  3. ZOMETA [Suspect]
     Indication: BREAST CANCER
     Dosage: 4 MG
     Route: 042

REACTIONS (4)
  - OSTEONECROSIS OF JAW [None]
  - PAIN [None]
  - BONE DISORDER [None]
  - APHAGIA [None]
